FAERS Safety Report 9503970 (Version 1)
Quarter: 2013Q3

REPORT INFORMATION
  Report Type: Spontaneous
  Country: FI (occurrence: FI)
  Receive Date: 20130906
  Receipt Date: 20130906
  Transmission Date: 20140515
  Serious: Yes (Hospitalization, Other)
  Sender: FDA-Public Use
  Company Number: FI-TEVA-428943ISR

PATIENT
  Age: 56 Year
  Sex: Male

DRUGS (1)
  1. AMOXIN COMP 875 MG/125 MG FILM-COATED TABLETS [Suspect]
     Route: 048

REACTIONS (2)
  - Jaundice [Not Recovered/Not Resolved]
  - Hepatitis toxic [Unknown]
